FAERS Safety Report 24730008 (Version 6)
Quarter: 2025Q4

REPORT INFORMATION
  Report Type: Spontaneous
  Country: JP (occurrence: JP)
  Receive Date: 20241213
  Receipt Date: 20251014
  Transmission Date: 20260117
  Serious: Yes (Life-Threatening, Hospitalization, Other)
  Sender: ASTELLAS
  Company Number: JP-ASTELLAS-2024-AER-020722

PATIENT
  Age: 70 Year
  Sex: Male
  Weight: 50 kg

DRUGS (18)
  1. PADCEV [Suspect]
     Active Substance: ENFORTUMAB VEDOTIN-EJFV
     Indication: Bladder cancer
     Route: 042
     Dates: start: 20241106, end: 20241106
  2. PADCEV [Suspect]
     Active Substance: ENFORTUMAB VEDOTIN-EJFV
     Route: 042
     Dates: start: 20241113, end: 20241113
  3. KEYTRUDA [Suspect]
     Active Substance: PEMBROLIZUMAB
     Indication: Bladder cancer
     Route: 042
     Dates: start: 20241106
  4. VANCOMYCIN [Suspect]
     Active Substance: VANCOMYCIN
     Indication: Febrile neutropenia
     Route: 065
     Dates: start: 20241127
  5. VANCOMYCIN [Suspect]
     Active Substance: VANCOMYCIN
     Route: 065
     Dates: end: 20241209
  6. METRONIDAZOLE [Suspect]
     Active Substance: METRONIDAZOLE
     Indication: Febrile neutropenia
     Route: 065
     Dates: start: 20241129, end: 20241130
  7. LEVOFLOXACIN [Suspect]
     Active Substance: LEVOFLOXACIN
     Indication: Febrile neutropenia
     Route: 065
     Dates: start: 20241130, end: 20241202
  8. KEFLEX [Suspect]
     Active Substance: CEPHALEXIN
     Indication: Product used for unknown indication
     Route: 048
  9. MEROPENEM [Suspect]
     Active Substance: MEROPENEM
     Indication: Febrile neutropenia
     Route: 065
     Dates: start: 20241122
  10. MICAFUNGIN [Suspect]
     Active Substance: MICAFUNGIN SODIUM
     Indication: Febrile neutropenia
     Route: 065
     Dates: start: 20241127
  11. Tamsulosin Hydrochloride OD Tablet [Concomitant]
     Indication: Product used for unknown indication
     Route: 048
  12. Beova Tablet [Concomitant]
     Indication: Product used for unknown indication
     Route: 048
  13. VEEN-F Injection [Concomitant]
     Indication: Product used for unknown indication
     Route: 042
  14. ISOTONIC SODIUM CHLORIDE SOLUTION [Concomitant]
     Active Substance: SODIUM CHLORIDE
     Indication: Product used for unknown indication
     Route: 042
  15. FILGRASTIM [Concomitant]
     Active Substance: FILGRASTIM
     Indication: Febrile neutropenia
     Route: 065
     Dates: start: 20241122
  16. FILGRASTIM [Concomitant]
     Active Substance: FILGRASTIM
     Route: 065
     Dates: start: 20241123
  17. FILGRASTIM [Concomitant]
     Active Substance: FILGRASTIM
     Route: 065
     Dates: start: 20241125
  18. FILGRASTIM [Concomitant]
     Active Substance: FILGRASTIM
     Route: 065
     Dates: start: 20241127

REACTIONS (6)
  - Febrile neutropenia [Recovered/Resolved]
  - Epilepsy [Recovered/Resolved]
  - Altered state of consciousness [Recovered/Resolved]
  - Hyperglycaemia [Unknown]
  - Urinary tract infection [Unknown]
  - Overdose [Unknown]

NARRATIVE: CASE EVENT DATE: 20241106
